FAERS Safety Report 14421047 (Version 3)
Quarter: 2018Q2

REPORT INFORMATION
  Report Type: Spontaneous
  Country: FR (occurrence: FR)
  Receive Date: 20180122
  Receipt Date: 20180416
  Transmission Date: 20180711
  Serious: Yes (Hospitalization)
  Sender: FDA-Public Use
  Company Number: FR-BAUSCH-BL-2018-001218

PATIENT
  Age: 81 Year
  Sex: Female
  Weight: 94 kg

DRUGS (14)
  1. MEROPENEM ANHYDRE [Suspect]
     Active Substance: MEROPENEM
     Route: 042
  2. ECONAZOLE [Suspect]
     Active Substance: ECONAZOLE
     Indication: FUNGAL INFECTION
     Route: 061
  3. ZOPICLONE [Suspect]
     Active Substance: ZOPICLONE
     Indication: INSOMNIA
     Route: 048
  4. NEFOPAM HYDROCHLORIDE [Suspect]
     Active Substance: NEFOPAM HYDROCHLORIDE
     Indication: PROCEDURAL PAIN
     Route: 065
  5. MEROPENEM ANHYDRE [Suspect]
     Active Substance: MEROPENEM
     Indication: BACTERIAL INFECTION
     Route: 042
  6. NEFOPAM (CHLORHYDRATE DE) [Suspect]
     Active Substance: NEFOPAM HYDROCHLORIDE
     Indication: PROCEDURAL PAIN
     Route: 065
  7. METOCLOPRAMIDE. [Suspect]
     Active Substance: METOCLOPRAMIDE
     Indication: PROPHYLAXIS OF NAUSEA AND VOMITING
     Route: 065
  8. PANTOPRAZOLE [Suspect]
     Active Substance: PANTOPRAZOLE
     Indication: PRODUCT USED FOR UNKNOWN INDICATION
     Route: 048
  9. TARGOCID [Suspect]
     Active Substance: TEICOPLANIN
     Indication: INFECTION
     Route: 042
     Dates: start: 20171009, end: 20171018
  10. COLCHICINE. [Suspect]
     Active Substance: COLCHICINE
     Indication: CHONDROCALCINOSIS
     Route: 048
  11. FLAMMAZINE [Suspect]
     Active Substance: SILVER SULFADIAZINE
     Indication: WOUND INFECTION FUNGAL
     Route: 061
  12. COUMADIN [Suspect]
     Active Substance: WARFARIN SODIUM
     Indication: DEEP VEIN THROMBOSIS
     Dosage: BREAKABLE TABLET
     Route: 049
  13. TARGOCID [Suspect]
     Active Substance: TEICOPLANIN
     Route: 042
  14. LASILIX SPECIAL [Suspect]
     Active Substance: FUROSEMIDE
     Indication: CARDIAC FAILURE
     Dosage: 1/2 CP PER DAY THEN 1 CP PER DAY THEN 1/2 CP PER DAY.?BREAKABLE TABLET
     Route: 048

REACTIONS (1)
  - Rash maculo-papular [Recovered/Resolved]

NARRATIVE: CASE EVENT DATE: 20171016
